FAERS Safety Report 9024377 (Version 2)
Quarter: 2013Q1

REPORT INFORMATION
  Report Type: Spontaneous
  Country: JP (occurrence: JP)
  Receive Date: 20130121
  Receipt Date: 20130204
  Transmission Date: 20140127
  Serious: No
  Sender: FDA-Public Use
  Company Number: JP-JNJFOC-20130107307

PATIENT
  Age: 19 Year
  Sex: Female

DRUGS (4)
  1. TYLENOL [Suspect]
     Indication: DIARRHOEA
     Route: 048
     Dates: start: 20130104
  2. TYLENOL [Suspect]
     Indication: VOMITING
     Route: 048
     Dates: start: 20130104
  3. NARON ACE [Suspect]
     Indication: DIARRHOEA
     Route: 065
     Dates: start: 20130103
  4. NARON ACE [Suspect]
     Indication: VOMITING
     Route: 065
     Dates: start: 20130103

REACTIONS (3)
  - Rash generalised [Recovered/Resolved]
  - Lip swelling [Recovered/Resolved]
  - Pruritus generalised [Recovered/Resolved]
